FAERS Safety Report 17364175 (Version 1)
Quarter: 2020Q1

REPORT INFORMATION
  Report Type: Spontaneous
  Country: JP (occurrence: JP)
  Receive Date: 20200204
  Receipt Date: 20200204
  Transmission Date: 20200409
  Serious: No
  Sender: FDA-Public Use
  Company Number: JP-LUPIN PHARMACEUTICALS INC.-2018-09003

PATIENT
  Age: 45 Year
  Sex: Female

DRUGS (4)
  1. ESCITALOPRAM [Suspect]
     Active Substance: ESCITALOPRAM OXALATE
     Dosage: 20 MG, QD
     Route: 065
  2. ESCITALOPRAM [Suspect]
     Active Substance: ESCITALOPRAM OXALATE
     Indication: MAJOR DEPRESSION
     Dosage: 10 MG, QD
     Route: 065
  3. PREDNISOLONE. [Concomitant]
     Active Substance: PREDNISOLONE
     Dosage: UNK, DOSE OF STEROIDS HAD BEEN DECREASED
     Route: 065
  4. PREDNISOLONE. [Concomitant]
     Active Substance: PREDNISOLONE
     Indication: SYSTEMIC LUPUS ERYTHEMATOSUS
     Dosage: 20 MG, UNK
     Route: 065

REACTIONS (8)
  - Poverty of speech [Recovering/Resolving]
  - Grandiosity [Recovering/Resolving]
  - Hypomania [Recovered/Resolved]
  - Distractibility [Recovering/Resolving]
  - Insomnia [Recovering/Resolving]
  - Discomfort [Recovering/Resolving]
  - Irritability [Recovering/Resolving]
  - Energy increased [Recovering/Resolving]
